FAERS Safety Report 22221542 (Version 1)
Quarter: 2023Q2

REPORT INFORMATION
  Report Type: Other
  Country: AU (occurrence: AU)
  Receive Date: 20230418
  Receipt Date: 20230418
  Transmission Date: 20230722
  Serious: Yes (Other)
  Sender: FDA-Public Use
  Company Number: AU-CELLTRION INC.-2023AU007814

PATIENT

DRUGS (6)
  1. RITUXIMAB [Suspect]
     Active Substance: RITUXIMAB
     Indication: Product used for unknown indication
  2. ADRIAMYCIN [Suspect]
     Active Substance: DOXORUBICIN HYDROCHLORIDE
     Indication: Product used for unknown indication
  3. CYCLOPHOSPHAMIDE [Suspect]
     Active Substance: CYCLOPHOSPHAMIDE
     Indication: Product used for unknown indication
  4. DEXAMETHASONE [Suspect]
     Active Substance: DEXAMETHASONE
     Indication: Product used for unknown indication
  5. IMATINIB [Suspect]
     Active Substance: IMATINIB
     Indication: Product used for unknown indication
  6. VINCRISTINE SULFATE [Suspect]
     Active Substance: VINCRISTINE SULFATE
     Indication: Product used for unknown indication

REACTIONS (17)
  - Acute lymphocytic leukaemia recurrent [Unknown]
  - Coronary artery stenosis [Unknown]
  - Malignant neoplasm progression [Unknown]
  - Mitral valve incompetence [Unknown]
  - Myelofibrosis [Unknown]
  - Pulmonary hypertension [Unknown]
  - Tricuspid valve incompetence [Unknown]
  - Vascular stent stenosis [Unknown]
  - Acute myocardial infarction [Unknown]
  - Neutropenic sepsis [Unknown]
  - Acute lymphocytic leukaemia (in remission) [Unknown]
  - Diastolic dysfunction [Unknown]
  - Hypokinesia [Unknown]
  - Left ventricular hypertrophy [Unknown]
  - Thrombocytosis [Unknown]
  - Coronary artery disease [Unknown]
  - Drug resistance [Unknown]
